FAERS Safety Report 4335110-0 (Version None)
Quarter: 2004Q1

REPORT INFORMATION
  Report Type: 
  Country: None (occurrence: None)
  Receive Date: 20040329
  Receipt Date: 20040128
  Transmission Date: 20041129
  Serious: No
  Sender: FDA-Public Use
  Company Number: 04P-163-0248749-00

PATIENT
  Age: 68 Year
  Sex: Female

DRUGS (10)
  1. HUMIRA [Suspect]
     Indication: RHEUMATOID ARTHRITIS
     Dosage: 40 MG, 1 IN 2 WK, SUBCUTANEOUS
     Route: 058
     Dates: start: 20031101
  2. PREDNISONE [Concomitant]
  3. MELOXICAM [Concomitant]
  4. LEVOTHYROXINE SODIUM [Concomitant]
  5. RISEDRONATE SODIUM [Concomitant]
  6. RABEPRAZOLE SODIUM [Concomitant]
  7. CONJUGATED ESTROGEN [Concomitant]
  8. CALCIUM [Concomitant]
  9. MSN+GLUCOSIMINE [Concomitant]
  10. FISH OIL [Concomitant]

REACTIONS (3)
  - INJECTION SITE ERYTHEMA [None]
  - INJECTION SITE PAIN [None]
  - INJECTION SITE PRURITUS [None]
